FAERS Safety Report 21148693 (Version 1)
Quarter: 2022Q3

REPORT INFORMATION
  Report Type: Report from Study
  Country: JP (occurrence: JP)
  Receive Date: 20220729
  Receipt Date: 20220729
  Transmission Date: 20221027
  Serious: Yes (Disabling)
  Sender: FDA-Public Use
  Company Number: JP-TAKEDA-2022TJP028025

PATIENT
  Age: 68 Year
  Sex: Male

DRUGS (2)
  1. LEUPLIN [Suspect]
     Active Substance: LEUPROLIDE ACETATE
     Indication: Bulbospinal muscular atrophy congenital
     Dosage: 11.25 MILLIGRAM, Q3MONTHS
     Route: 058
     Dates: start: 20180705
  2. ENORAS [Concomitant]
     Indication: Hypophagia
     Dosage: 187.5 MILLILITER
     Route: 065
     Dates: start: 20200213

REACTIONS (2)
  - Condition aggravated [Not Recovered/Not Resolved]
  - Bulbospinal muscular atrophy congenital [Not Recovered/Not Resolved]

NARRATIVE: CASE EVENT DATE: 20191224
